FAERS Safety Report 8239035-X (Version None)
Quarter: 2012Q1

REPORT INFORMATION
  Report Type: 
  Country: None (occurrence: None)
  Receive Date: 20120327
  Receipt Date: 20120319
  Transmission Date: 20120608
  Serious: Yes (Other)
  Sender: FDA-Public Use
  Company Number: US-ASTRAZENECA-2012SE02297

PATIENT
  Age: 60 Year
  Sex: Female

DRUGS (11)
  1. SEROQUEL XR [Suspect]
     Indication: SLEEP DISORDER
     Route: 048
  2. LOSARTAN POTASSIUM [Concomitant]
  3. SEROQUEL XR [Suspect]
     Indication: STRESS
     Route: 048
  4. PRILOSEC OTC [Suspect]
     Route: 048
  5. LEVOCETRIZINE [Concomitant]
     Route: 048
  6. ATENOLOL [Concomitant]
     Route: 048
  7. NYSTATIN [Concomitant]
  8. SEROQUEL XR [Suspect]
     Indication: PANIC ATTACK
     Route: 048
  9. SEROQUEL XR [Suspect]
     Indication: DEPRESSION
     Route: 048
  10. NEXIUM [Suspect]
     Route: 048
  11. LISINOPRIL [Suspect]
     Route: 048

REACTIONS (23)
  - WRIST FRACTURE [None]
  - ALLERGIC SINUSITIS [None]
  - HEAD INJURY [None]
  - THROAT IRRITATION [None]
  - HAND FRACTURE [None]
  - HEADACHE [None]
  - VOMITING [None]
  - DRUG INEFFECTIVE [None]
  - INTENTIONAL DRUG MISUSE [None]
  - FALL [None]
  - ACCIDENT [None]
  - INTERTRIGO [None]
  - DEPRESSION [None]
  - MYALGIA [None]
  - DIZZINESS [None]
  - ROAD TRAFFIC ACCIDENT [None]
  - NASAL CONGESTION [None]
  - BLOOD PRESSURE DECREASED [None]
  - ANXIETY [None]
  - BACK PAIN [None]
  - URINARY TRACT INFECTION [None]
  - DYSPHAGIA [None]
  - RASH [None]
